FAERS Safety Report 25926025 (Version 2)
Quarter: 2025Q4

REPORT INFORMATION
  Report Type: Spontaneous
  Country: EU (occurrence: EU)
  Receive Date: 20251015
  Receipt Date: 20251031
  Transmission Date: 20260118
  Serious: Yes (Life-Threatening)
  Sender: MERCK SHARP & DOHME LLC
  Company Number: None

PATIENT
  Age: 47 Year
  Sex: Male
  Weight: 74 kg

DRUGS (3)
  1. KEYTRUDA [Suspect]
     Active Substance: PEMBROLIZUMAB
     Indication: Transitional cell carcinoma metastatic
     Dosage: C1J1 C2J1
     Route: 042
     Dates: start: 20250128, end: 20250218
  2. BACTRIM [Suspect]
     Active Substance: SULFAMETHOXAZOLE\TRIMETHOPRIM
     Indication: Urinary tract infection
     Dosage: NO, SPECIFIED
     Route: 065
     Dates: start: 20250227, end: 20250309
  3. PADCEV [Suspect]
     Active Substance: ENFORTUMAB VEDOTIN-EJFV
     Indication: Transitional cell carcinoma metastatic
     Dosage: C1J1 C1J8 C2J1 C2J8
     Route: 042
     Dates: start: 20250128, end: 20250225

REACTIONS (2)
  - Erythema [Recovered/Resolved]
  - Haemophagocytic lymphohistiocytosis [Recovered/Resolved]

NARRATIVE: CASE EVENT DATE: 20250307
